FAERS Safety Report 16394032 (Version 4)
Quarter: 2019Q3

REPORT INFORMATION
  Report Type: Report from Study
  Country: US (occurrence: US)
  Receive Date: 20190605
  Receipt Date: 20190904
  Transmission Date: 20191004
  Serious: No
  Sender: FDA-Public Use
  Company Number: PHEH2019US023450

PATIENT
  Age: 32 Year
  Sex: Female

DRUGS (1)
  1. GILENYA [Suspect]
     Active Substance: FINGOLIMOD HYDROCHLORIDE
     Indication: MULTIPLE SCLEROSIS
     Dosage: 0.5 MG, QD
     Route: 048
     Dates: start: 20190521, end: 201906

REACTIONS (13)
  - Vitreous floaters [Recovering/Resolving]
  - Vision blurred [Recovering/Resolving]
  - Weight increased [Unknown]
  - Headache [Recovering/Resolving]
  - Head discomfort [Recovering/Resolving]
  - Dysgeusia [Recovering/Resolving]
  - Disorientation [Unknown]
  - Fatigue [Unknown]
  - Photophobia [Unknown]
  - Clumsiness [Unknown]
  - Heart rate increased [Unknown]
  - Feeling abnormal [Recovering/Resolving]
  - Migraine [Unknown]

NARRATIVE: CASE EVENT DATE: 20190523
